FAERS Safety Report 10974613 (Version 3)
Quarter: 2016Q2

REPORT INFORMATION
  Report Type: Spontaneous
  Country: US (occurrence: US)
  Receive Date: 20150401
  Receipt Date: 20160613
  Transmission Date: 20160815
  Serious: No
  Sender: FDA-Public Use
  Company Number: US-ASTRAZENECA-2014SE57105

PATIENT
  Age: 51 Year
  Sex: Male
  Weight: 91.6 kg

DRUGS (19)
  1. SUDAFED [Concomitant]
     Active Substance: PSEUDOEPHEDRINE HYDROCHLORIDE
     Indication: HYPERSENSITIVITY
  2. INVOKANA [Concomitant]
     Active Substance: CANAGLIFLOZIN
     Indication: TYPE 2 DIABETES MELLITUS
  3. VITAMINS [Concomitant]
     Active Substance: VITAMINS
  4. GLIMEPIRIDE. [Concomitant]
     Active Substance: GLIMEPIRIDE
     Dosage: 2.0MG UNKNOWN
  5. HCTZ [Concomitant]
     Active Substance: HYDROCHLOROTHIAZIDE
  6. POTASSIUM [Concomitant]
     Active Substance: POTASSIUM
     Dosage: 50.0MG UNKNOWN
  7. METFORMIN [Concomitant]
     Active Substance: METFORMIN HYDROCHLORIDE
  8. BYDUREON [Suspect]
     Active Substance: EXENATIDE
     Indication: TYPE 2 DIABETES MELLITUS
     Route: 058
     Dates: start: 2014
  9. BYETTA [Suspect]
     Active Substance: EXENATIDE
     Indication: TYPE 2 DIABETES MELLITUS
     Route: 058
  10. LOVASTATIN. [Concomitant]
     Active Substance: LOVASTATIN
  11. MONTELUKAST [Concomitant]
     Active Substance: MONTELUKAST SODIUM
     Indication: HYPERSENSITIVITY
     Dosage: 10.0MG UNKNOWN
  12. VALSARTAN. [Concomitant]
     Active Substance: VALSARTAN
     Dosage: 160/12.5
  13. FENOFIBRATE. [Concomitant]
     Active Substance: FENOFIBRATE
  14. VITAMIN D [Concomitant]
     Active Substance: CHOLECALCIFEROL
     Dosage: 1.25MG/50,000 IU ONCE A WEEK
  15. CELECOXIB. [Concomitant]
     Active Substance: CELECOXIB
  16. BYETTA [Suspect]
     Active Substance: EXENATIDE
     Indication: TYPE 2 DIABETES MELLITUS
     Route: 058
     Dates: end: 201503
  17. BYETTA [Suspect]
     Active Substance: EXENATIDE
     Indication: TYPE 2 DIABETES MELLITUS
     Route: 058
     Dates: start: 201503
  18. METOPROLOL. [Suspect]
     Active Substance: METOPROLOL
     Indication: HEART RATE IRREGULAR
     Dosage: 25.0MG UNKNOWN
     Route: 048
  19. LOSARTAN. [Concomitant]
     Active Substance: LOSARTAN

REACTIONS (9)
  - Injection site pruritus [Recovering/Resolving]
  - Underdose [Unknown]
  - Drug hypersensitivity [Recovered/Resolved]
  - Injection site nodule [Recovering/Resolving]
  - Blood glucose increased [Unknown]
  - Needle issue [Unknown]
  - Incision site vesicles [Recovering/Resolving]
  - Weight decreased [Unknown]
  - Intentional product misuse [Not Recovered/Not Resolved]

NARRATIVE: CASE EVENT DATE: 2014
